FAERS Safety Report 6656248-9 (Version None)
Quarter: 2010Q1

REPORT INFORMATION
  Report Type: 
  Country: None (occurrence: None)
  Receive Date: 20100317
  Receipt Date: 20091210
  Transmission Date: 20100710
  Serious: No
  Sender: FDA-Public Use
  Company Number: DSA_42172_2009

PATIENT
  Sex: Female

DRUGS (13)
  1. XENAZINE [Suspect]
     Indication: DRUG USE FOR UNKNOWN INDICATION
     Dosage: (25 MG BID ORAL), (1/2 25 MG TABLET FREQUENCY UNSPECIFIED ORAL)
     Route: 048
     Dates: start: 20090101, end: 20090101
  2. XENAZINE [Suspect]
     Indication: DRUG USE FOR UNKNOWN INDICATION
     Dosage: (25 MG BID ORAL), (1/2 25 MG TABLET FREQUENCY UNSPECIFIED ORAL)
     Route: 048
     Dates: start: 20091111, end: 20090101
  3. CELEXA [Concomitant]
  4. SIMVASTATIN [Concomitant]
  5. XANAX [Concomitant]
  6. PROPRANOLOL [Concomitant]
  7. HYZAAR [Concomitant]
  8. VITAMINS NOS [Concomitant]
  9. ASPIRIN [Concomitant]
  10. GLIPIZIDE [Concomitant]
  11. NORVASC [Concomitant]
  12. ADVAIR DISKUS 100/50 [Concomitant]
  13. VENTOLIN [Concomitant]

REACTIONS (2)
  - HEADACHE [None]
  - TREMOR [None]
